FAERS Safety Report 6694671-7 (Version None)
Quarter: 2010Q2

REPORT INFORMATION
  Report Type: 
  Country: None (occurrence: None)
  Receive Date: 20100423
  Receipt Date: 20100413
  Transmission Date: 20101027
  Serious: Yes (Other)
  Sender: FDA-Public Use
  Company Number: US-ABBOTT-10P-163-0636569-00

PATIENT
  Sex: Female
  Weight: 54.48 kg

DRUGS (5)
  1. HUMIRA [Suspect]
     Indication: RHEUMATOID ARTHRITIS
     Route: 058
     Dates: start: 20100105, end: 20100316
  2. ZOSTIRE [Concomitant]
     Indication: ASTHMA
  3. UNKNOWN STEROID INJECTION [Concomitant]
     Indication: RHEUMATOID ARTHRITIS
  4. VENTYLIN [Concomitant]
     Indication: ASTHMA
  5. ALBUTEROL [Concomitant]
     Indication: ASTHMA

REACTIONS (7)
  - AURICULAR SWELLING [None]
  - DYSPNOEA [None]
  - EYE SWELLING [None]
  - PRURITUS [None]
  - RESPIRATORY TRACT CONGESTION [None]
  - SWELLING FACE [None]
  - WHEEZING [None]
